FAERS Safety Report 20427738 (Version 2)
Quarter: 2022Q1

REPORT INFORMATION
  Report Type: Spontaneous
  Country: JP (occurrence: JP)
  Receive Date: 20220204
  Receipt Date: 20220222
  Transmission Date: 20220423
  Serious: No
  Sender: FDA-Public Use
  Company Number: None

PATIENT
  Age: 8 Decade
  Sex: Female

DRUGS (3)
  1. GABAPENTIN [Suspect]
     Active Substance: GABAPENTIN
     Indication: Seizure prophylaxis
     Dosage: UNK
     Route: 065
  2. TRAMADOL [Suspect]
     Active Substance: TRAMADOL
     Indication: Phantom limb syndrome
     Dosage: UNK
     Route: 065
  3. MIROGABALIN [Suspect]
     Active Substance: MIROGABALIN
     Indication: Seizure prophylaxis
     Dosage: UNK
     Route: 065

REACTIONS (3)
  - Nausea [Unknown]
  - Somnolence [Unknown]
  - Drug ineffective [Unknown]
